FAERS Safety Report 4452884-9 (Version None)
Quarter: 2004Q3

REPORT INFORMATION
  Report Type: 
  Country: None (occurrence: None)
  Receive Date: 20040916
  Receipt Date: 20040903
  Transmission Date: 20050211
  Serious: No
  Sender: FDA-Public Use
  Company Number: MC200400459

PATIENT
  Age: 47 Year
  Sex: Male
  Weight: 79.4 kg

DRUGS (2)
  1. ANGIOMAX [Suspect]
     Dosage: SEE IMAGE
     Route: 040
     Dates: start: 20040716, end: 20040716
  2. REOPRO [Concomitant]

REACTIONS (3)
  - CARDIAC TAMPONADE [None]
  - CORONARY ARTERY DISEASE [None]
  - POST PROCEDURAL COMPLICATION [None]
